FAERS Safety Report 9524353 (Version 1)
Quarter: 2013Q3

REPORT INFORMATION
  Report Type: Spontaneous
  Country: NO (occurrence: NO)
  Receive Date: 20130916
  Receipt Date: 20130916
  Transmission Date: 20140515
  Serious: Yes (Death, Hospitalization)
  Sender: FDA-Public Use
  Company Number: NO-JNJFOC-20130907850

PATIENT
  Age: 83 Year
  Sex: Female

DRUGS (3)
  1. DOXORUBICIN HYDROCHLORIDE [Suspect]
     Indication: SMALL CELL LUNG CANCER
     Route: 041
     Dates: start: 2013, end: 20130730
  2. CYCLOPHOSPHAMIDE [Suspect]
     Indication: SMALL CELL LUNG CANCER
     Route: 041
     Dates: start: 2013, end: 20130730
  3. VINCRISTINE [Suspect]
     Indication: SMALL CELL LUNG CANCER
     Route: 041
     Dates: start: 2013, end: 20130730

REACTIONS (6)
  - Renal failure [Fatal]
  - Febrile neutropenia [Fatal]
  - General physical health deterioration [Fatal]
  - Incorrect dose administered [Fatal]
  - Medication error [Fatal]
  - Off label use [Unknown]
